FAERS Safety Report 5868538-8 (Version None)
Quarter: 2008Q3

REPORT INFORMATION
  Report Type: 
  Country: None (occurrence: None)
  Receive Date: 20080903
  Receipt Date: 20080902
  Transmission Date: 20090109
  Serious: Yes (Hospitalization)
  Sender: FDA-Public Use
  Company Number: US-BRISTOL-MYERS SQUIBB COMPANY-14321640

PATIENT
  Age: 61 Year
  Sex: Female

DRUGS (2)
  1. CYTOXAN [Suspect]
  2. AVONEX [Suspect]

REACTIONS (1)
  - LOSS OF CONSCIOUSNESS [None]
